FAERS Safety Report 6959239-3 (Version None)
Quarter: 2010Q3

REPORT INFORMATION
  Report Type: 
  Country: None (occurrence: None)
  Receive Date: 20100831
  Receipt Date: 20100820
  Transmission Date: 20110219
  Serious: Yes (Hospitalization, Other)
  Sender: FDA-Public Use
  Company Number: US-PFIZER INC-2010105394

PATIENT
  Sex: Female

DRUGS (4)
  1. CHANTIX [Suspect]
     Indication: SMOKING CESSATION THERAPY
     Dosage: 1 MG, 2X/DAY
     Route: 048
     Dates: start: 20100401, end: 20100801
  2. GEODON [Suspect]
     Dosage: UNK
     Route: 048
     Dates: start: 20100101
  3. CELEXA [Suspect]
     Dosage: UNK
     Dates: start: 20100101
  4. WELLBUTRIN [Suspect]
     Dosage: UNK
     Route: 048
     Dates: start: 20100101

REACTIONS (6)
  - AGORAPHOBIA [None]
  - AMNESIA [None]
  - HALLUCINATION [None]
  - MENTAL IMPAIRMENT [None]
  - PARANOIA [None]
  - SUICIDAL IDEATION [None]
